FAERS Safety Report 24958050 (Version 1)
Quarter: 2025Q1

REPORT INFORMATION
  Report Type: Spontaneous
  Country: CA (occurrence: CA)
  Receive Date: 20250212
  Receipt Date: 20250212
  Transmission Date: 20250409
  Serious: Yes (Hospitalization)
  Sender: Haleon PLC
  Company Number: CA-HALEON-2227467

PATIENT

DRUGS (2)
  1. THRIVE [Suspect]
     Active Substance: NICOTINE
     Indication: Product used for unknown indication
  2. NICORETTE [Suspect]
     Active Substance: NICOTINE
     Indication: Product used for unknown indication

REACTIONS (2)
  - Cold sweat [Unknown]
  - Abdominal pain [Unknown]
